FAERS Safety Report 9818796 (Version 1)
Quarter: 2013Q4

REPORT INFORMATION
  Report Type: Spontaneous
  Country: US (occurrence: None)
  Receive Date: 20131223
  Receipt Date: 20131223
  Transmission Date: 20140711
  Serious: Yes (Other)
  Sender: FDA-Public Use
  Company Number: 220730

PATIENT
  Age: 52 Year
  Sex: Male

DRUGS (2)
  1. PICATO [Suspect]
     Indication: PHOTODERMATOSIS
     Route: 061
     Dates: start: 20130219, end: 20130221
  2. SUNSCREEN(SUNSCREEN) [Concomitant]

REACTIONS (4)
  - Application site reaction [None]
  - Application site pain [None]
  - Application site erythema [None]
  - Drug administered at inappropriate site [None]
